FAERS Safety Report 13247530 (Version 1)
Quarter: 2017Q1

REPORT INFORMATION
  Report Type: Report from Study
  Country: None (occurrence: AR)
  Receive Date: 20170217
  Receipt Date: 20170217
  Transmission Date: 20170428
  Serious: Yes (Other)
  Sender: FDA-Public Use
  Company Number: AR-ABBVIE-17P-007-1878405-00

PATIENT
  Age: 73 Year
  Sex: Female

DRUGS (1)
  1. PARICALCITOL. [Suspect]
     Active Substance: PARICALCITOL
     Indication: HYPERPARATHYROIDISM SECONDARY
     Route: 042
     Dates: start: 20140617

REACTIONS (3)
  - Pain in extremity [Not Recovered/Not Resolved]
  - Nail discolouration [Unknown]
  - Localised infection [Not Recovered/Not Resolved]

NARRATIVE: CASE EVENT DATE: 201612
